FAERS Safety Report 7650101-X (Version None)
Quarter: 2011Q3

REPORT INFORMATION
  Report Type: 
  Country: None (occurrence: None)
  Receive Date: 20110802
  Receipt Date: 20110801
  Transmission Date: 20111222
  Serious: Yes (Hospitalization)
  Sender: FDA-Public Use
  Company Number: DE-ABBOTT-11P-062-0713998-00

PATIENT
  Age: 48 Year
  Sex: Female
  Weight: 60 kg

DRUGS (3)
  1. HUMIRA [Suspect]
     Dates: end: 20110307
  2. HUMIRA [Suspect]
     Indication: CROHN'S DISEASE
     Dosage: 160 MG IN WEEK 0; 80 MG IN WEEK 2; 40 MG EOW
     Route: 058
     Dates: start: 20091203
  3. HUMIRA [Suspect]
     Dosage: 80MG IN WEEK 2

REACTIONS (3)
  - DRUG INEFFECTIVE [None]
  - POLYARTHRITIS [None]
  - ARTHRITIS ENTEROPATHIC [None]
